FAERS Safety Report 7446304-X (Version None)
Quarter: 2011Q2

REPORT INFORMATION
  Report Type: 
  Country: None (occurrence: None)
  Receive Date: 20110429
  Receipt Date: 20100514
  Transmission Date: 20111010
  Serious: No
  Sender: FDA-Public Use
  Company Number: US-ASTRAZENECA-2010SE22295

PATIENT
  Age: 67 Year
  Sex: Female

DRUGS (6)
  1. NEXIUM [Suspect]
     Indication: GASTROOESOPHAGEAL REFLUX DISEASE
     Route: 048
  2. LEXAPRO [Concomitant]
  3. ADIVENT [Concomitant]
  4. LORAZEPAM [Concomitant]
  5. AMLODIPINE [Concomitant]
  6. CLIMARA [Concomitant]

REACTIONS (4)
  - HYPERTENSION [None]
  - MALAISE [None]
  - DRUG DOSE OMISSION [None]
  - BLOOD CHOLESTEROL INCREASED [None]
